FAERS Safety Report 20483402 (Version 3)
Quarter: 2022Q1

REPORT INFORMATION
  Report Type: Spontaneous
  Country: JP (occurrence: JP)
  Receive Date: 20220217
  Receipt Date: 20220223
  Transmission Date: 20220423
  Serious: Yes (Hospitalization)
  Sender: FDA-Public Use
  Company Number: JP-JNJFOC-20220236647

PATIENT
  Age: 83 Year
  Sex: Male

DRUGS (1)
  1. MINOXIDIL [Suspect]
     Active Substance: MINOXIDIL
     Indication: Androgenetic alopecia
     Route: 061

REACTIONS (3)
  - Aortic aneurysm [Recovered/Resolved]
  - Intra-thoracic aortic aneurysm repair [Recovered/Resolved]
  - Oedema peripheral [Unknown]
